FAERS Safety Report 17009454 (Version 1)
Quarter: 2019Q4

REPORT INFORMATION
  Report Type: Spontaneous
  Country: US (occurrence: US)
  Receive Date: 20191108
  Receipt Date: 20191108
  Transmission Date: 20200122
  Serious: Yes (Hospitalization)
  Sender: FDA-Public Use
  Company Number: US-MYLANLABS-2019M1106497

PATIENT
  Age: 84 Year
  Sex: Male

DRUGS (3)
  1. GABAPENTIN. [Concomitant]
     Active Substance: GABAPENTIN
     Indication: NEURALGIA
     Dosage: THREE TIMES DAILY
     Route: 065
  2. ROPINIROLE. [Suspect]
     Active Substance: ROPINIROLE
     Dosage: THREE TIMES A DAY
     Route: 065
  3. ROPINIROLE. [Suspect]
     Active Substance: ROPINIROLE
     Indication: RESTLESS LEGS SYNDROME
     Dosage: THREE TIMES A DAY
     Route: 065

REACTIONS (3)
  - Psychotic symptom [Recovered/Resolved]
  - Bipolar disorder [Recovered/Resolved]
  - Affective disorder [Recovered/Resolved]
